FAERS Safety Report 10087188 (Version 1)
Quarter: 2014Q2

REPORT INFORMATION
  Report Type: Spontaneous
  Country: TR (occurrence: TR)
  Receive Date: 20140418
  Receipt Date: 20140418
  Transmission Date: 20141212
  Serious: Yes (Hospitalization)
  Sender: FDA-Public Use
  Company Number: TR-ABBVIE-14P-161-1224497-00

PATIENT
  Age: 13 Year
  Sex: Female

DRUGS (3)
  1. CYCLOSPORINE [Suspect]
     Indication: DIARRHOEA
     Dosage: DOSE GRADUALLY DECREASED
  2. CYCLOSPORINE [Suspect]
     Indication: COELIAC DISEASE
  3. METHYLPREDNISOLONE [Concomitant]
     Indication: AUTOIMMUNE DISORDER

REACTIONS (2)
  - Multi-organ failure [Recovered/Resolved]
  - Thrombotic microangiopathy [Recovered/Resolved]
